FAERS Safety Report 6024935-1 (Version None)
Quarter: 2008Q4

REPORT INFORMATION
  Report Type: 
  Country: None (occurrence: None)
  Receive Date: 20081231
  Receipt Date: 20081222
  Transmission Date: 20090506
  Serious: Yes (Hospitalization)
  Sender: FDA-Public Use
  Company Number: US-ABBOTT-08P-163-0494071-00

PATIENT
  Sex: Female
  Weight: 63.56 kg

DRUGS (5)
  1. HUMIRA [Suspect]
     Indication: RHEUMATOID ARTHRITIS
     Route: 058
     Dates: start: 20080826, end: 20081101
  2. HUMIRA [Suspect]
     Route: 058
     Dates: start: 20081110, end: 20081130
  3. HUMIRA [Suspect]
     Dates: start: 20081218
  4. METHOTREXATE [Suspect]
     Indication: RHEUMATOID ARTHRITIS
     Route: 048
     Dates: start: 20040101, end: 20070101
  5. METHOTREXATE [Suspect]
     Route: 048
     Dates: end: 20081125

REACTIONS (10)
  - CHILLS [None]
  - COUGH [None]
  - DIZZINESS [None]
  - DYSPNOEA [None]
  - HYPOAESTHESIA [None]
  - JOINT SWELLING [None]
  - MUSCLE TIGHTNESS [None]
  - PAIN [None]
  - PARAESTHESIA [None]
  - URINARY TRACT INFECTION [None]
